FAERS Safety Report 17500691 (Version 1)
Quarter: 2020Q1

REPORT INFORMATION
  Report Type: Spontaneous
  Country: AU (occurrence: AU)
  Receive Date: 20200305
  Receipt Date: 20200305
  Transmission Date: 20200409
  Serious: Yes (Hospitalization, Other)
  Sender: FDA-Public Use
  Company Number: AU-ACCORD-174034

PATIENT
  Age: 14 Year
  Sex: Male

DRUGS (2)
  1. CLOZARIL [Suspect]
     Active Substance: CLOZAPINE
     Indication: SCHIZOPHRENIA
     Route: 048
     Dates: start: 20200203
  2. QUETIAPINE. [Suspect]
     Active Substance: QUETIAPINE
     Indication: SCHIZOPHRENIA

REACTIONS (5)
  - Neuroleptic malignant syndrome [Unknown]
  - Malaise [Unknown]
  - Blood creatine phosphokinase increased [Unknown]
  - Injury [Unknown]
  - Myocarditis [Unknown]
